FAERS Safety Report 13004679 (Version 1)
Quarter: 2016Q4

REPORT INFORMATION
  Report Type: Spontaneous
  Country: US (occurrence: US)
  Receive Date: 20161207
  Receipt Date: 20161207
  Transmission Date: 20170207
  Serious: Yes (Hospitalization, Other)
  Sender: FDA-Public Use
  Company Number: US-CIPLA LTD.-2016US22403

PATIENT

DRUGS (8)
  1. EFAVIRENZ [Suspect]
     Active Substance: EFAVIRENZ
     Dosage: 400 MG, DAILY
     Route: 048
     Dates: start: 200304
  2. EFAVIRENZ [Suspect]
     Active Substance: EFAVIRENZ
     Dosage: 600 MG, DAILY (13.6 MG/KG/DAY)
     Route: 048
     Dates: start: 200406
  3. RISPERIDONE. [Suspect]
     Active Substance: RISPERIDONE
     Indication: PSYCHOTIC DISORDER
     Dosage: UNK
     Route: 065
  4. STAVUDINE. [Suspect]
     Active Substance: STAVUDINE
     Indication: HIV INFECTION
     Dosage: 30 MG, BID (1.4 MG/KG/DAY)
     Route: 048
  5. LOPINAVIR [Suspect]
     Active Substance: LOPINAVIR
     Indication: HIV INFECTION
     Dosage: 400 MG, BID (18.2 MG/KG/DAY)
     Route: 048
  6. RITONAVIR. [Suspect]
     Active Substance: RITONAVIR
     Indication: HIV INFECTION
     Dosage: 100 MG, BID (4.6 MG/KG/DAY)
     Route: 048
  7. DIDANOSINE. [Suspect]
     Active Substance: DIDANOSINE
     Indication: HIV INFECTION
     Dosage: 250 MG, DAILY (5.7 MG/KG/DAY)
     Route: 048
  8. EFAVIRENZ [Suspect]
     Active Substance: EFAVIRENZ
     Indication: HIV INFECTION
     Dosage: 350 MG, DAILY
     Route: 048

REACTIONS (3)
  - Weight increased [Unknown]
  - Drug level increased [Recovered/Resolved]
  - Psychotic disorder [Recovered/Resolved]
